FAERS Safety Report 8934877 (Version 1)
Quarter: 2012Q4

REPORT INFORMATION
  Report Type: 
  Country: IT (occurrence: IT)
  Receive Date: 20121129
  Receipt Date: 20121129
  Transmission Date: 20130627
  Serious: Yes (Life-Threatening, Hospitalization, Other)
  Sender: FDA-Public Use
  Company Number: IT-ACTELION-A-CH2012-75119

PATIENT
  Age: 77 Year
  Sex: Female
  Weight: 65 kg

DRUGS (9)
  1. TRACLEER [Suspect]
     Indication: PULMONARY ARTERIAL HYPERTENSION
     Dosage: 62.5 mg, bid
     Route: 048
     Dates: start: 20120613, end: 20121008
  2. CARDIOASPIRINA [Concomitant]
     Dosage: UNK
     Dates: start: 20110316
  3. LANSOPRAZOLO [Concomitant]
     Dosage: UNK
     Dates: start: 20110316
  4. PREDNISONE [Concomitant]
     Dosage: UNK
     Dates: start: 2008
  5. NIFEDIPINA [Concomitant]
     Dosage: UNK
     Dates: start: 2008
  6. AMLODIPINA [Concomitant]
     Dosage: UNK
     Dates: start: 2010
  7. VALSARTAN [Concomitant]
     Dosage: UNK
     Dates: start: 2010
  8. METFORMINA [Concomitant]
     Dosage: UNK
     Dates: start: 2008
  9. SULFONAMIDES [Concomitant]

REACTIONS (4)
  - Pancytopenia [Recovered/Resolved with Sequelae]
  - Thrombocytopenia [Not Recovered/Not Resolved]
  - Toxicity to various agents [Unknown]
  - Biopsy bone marrow [Unknown]
